FAERS Safety Report 16759232 (Version 1)
Quarter: 2019Q3

REPORT INFORMATION
  Report Type: Spontaneous
  Country: US (occurrence: US)
  Receive Date: 20190830
  Receipt Date: 20190830
  Transmission Date: 20191005
  Serious: Yes (Hospitalization, Other)
  Sender: FDA-Public Use
  Company Number: US-MYLANLABS-2019M1079180

PATIENT
  Age: 51 Year
  Sex: Male

DRUGS (2)
  1. DEXAMETHASONE. [Suspect]
     Active Substance: DEXAMETHASONE
     Indication: BACK PAIN
     Dosage: 10 MILLIGRAM, QD
     Route: 030
     Dates: start: 201902
  2. KETOROLAC TROMETHAMINE. [Suspect]
     Active Substance: KETOROLAC TROMETHAMINE
     Indication: BACK PAIN
     Dosage: 60 MILLIGRAM, QD
     Route: 030
     Dates: start: 201902

REACTIONS (3)
  - Staphylococcal infection [Unknown]
  - Psoas abscess [Unknown]
  - Retroperitoneal abscess [Unknown]
